FAERS Safety Report 5464173-4 (Version None)
Quarter: 2007Q3

REPORT INFORMATION
  Report Type: 
  Country: None (occurrence: None)
  Receive Date: 20070921
  Receipt Date: 20070917
  Transmission Date: 20080115
  Serious: Yes (Other)
  Sender: FDA-Public Use
  Company Number: US-GENENTECH-247896

PATIENT
  Sex: Female
  Weight: 78.005 kg

DRUGS (1)
  1. RAPTIVA [Suspect]
     Indication: PSORIASIS
     Dosage: 0.8 ML, 1/WEEK
     Route: 058
     Dates: start: 20070601

REACTIONS (1)
  - BLISTER [None]
